FAERS Safety Report 16467022 (Version 1)
Quarter: 2019Q2

REPORT INFORMATION
  Report Type: Spontaneous
  Country: US (occurrence: US)
  Receive Date: 20190624
  Receipt Date: 20190624
  Transmission Date: 20190711
  Serious: No
  Sender: FDA-Public Use
  Company Number: US-LUPIN PHARMACEUTICALS INC.-2018-03540

PATIENT
  Age: 75 Year
  Sex: Female
  Weight: 87.08 kg

DRUGS (1)
  1. VANCOMYCIN HYDROCHLORIDE CAPSULES USP 125 MG [Suspect]
     Active Substance: VANCOMYCIN HYDROCHLORIDE
     Indication: CLOSTRIDIUM DIFFICILE COLITIS
     Dosage: 125 MG, QD
     Route: 048
     Dates: start: 20180416, end: 20180420

REACTIONS (1)
  - Drug ineffective [Unknown]

NARRATIVE: CASE EVENT DATE: 20180416
